FAERS Safety Report 21362936 (Version 1)
Quarter: 2022Q3

REPORT INFORMATION
  Report Type: Spontaneous
  Country: JP (occurrence: JP)
  Receive Date: 20220922
  Receipt Date: 20220922
  Transmission Date: 20221026
  Serious: Yes (Other)
  Sender: FDA-Public Use
  Company Number: JP-ADVANZ PHARMA-202209005817

PATIENT

DRUGS (7)
  1. HYDROXYCHLOROQUINE SULFATE [Suspect]
     Active Substance: HYDROXYCHLOROQUINE SULFATE
     Indication: Systemic lupus erythematosus
     Dosage: 200 MG, QD
     Route: 048
     Dates: start: 2015, end: 2016
  2. HYDROXYCHLOROQUINE SULFATE [Suspect]
     Active Substance: HYDROXYCHLOROQUINE SULFATE
     Dosage: 200 MG, QOD
     Route: 048
     Dates: start: 2016
  3. HYDROXYCHLOROQUINE SULFATE [Suspect]
     Active Substance: HYDROXYCHLOROQUINE SULFATE
     Dosage: 200 MG EVERY 3 DAYS
     Route: 048
     Dates: end: 2022
  4. PREDNISOLONE [Concomitant]
     Active Substance: PREDNISOLONE
     Indication: Systemic lupus erythematosus
     Dosage: UNK
     Dates: start: 2014
  5. PREDNISOLONE [Concomitant]
     Active Substance: PREDNISOLONE
     Dosage: 10 MG, TAPERED DOSE
     Dates: start: 2015, end: 2016
  6. TACROLIMUS [Concomitant]
     Active Substance: TACROLIMUS
     Indication: Systemic lupus erythematosus
     Dosage: UNK
     Dates: start: 2014, end: 2016
  7. MIZORIBINE [Concomitant]
     Active Substance: MIZORIBINE
     Indication: Systemic lupus erythematosus
     Dosage: UNK
     Dates: start: 2016, end: 2021

REACTIONS (16)
  - Gastrointestinal oedema [Unknown]
  - Altered state of consciousness [Unknown]
  - Upper respiratory tract inflammation [Unknown]
  - Arthralgia [Unknown]
  - Complement factor C3 decreased [Unknown]
  - Complement factor C4 decreased [Unknown]
  - Pleural effusion [Unknown]
  - Double stranded DNA antibody positive [Unknown]
  - DNA antibody positive [Unknown]
  - Oropharyngeal pain [Unknown]
  - Pyrexia [Unknown]
  - Diarrhoea [Recovering/Resolving]
  - Abdominal pain upper [Unknown]
  - Urticaria [Unknown]
  - Rash [Unknown]
  - Inappropriate schedule of product administration [Unknown]

NARRATIVE: CASE EVENT DATE: 20150101
